FAERS Safety Report 18073360 (Version 3)
Quarter: 2020Q3

REPORT INFORMATION
  Report Type: Spontaneous
  Country: US (occurrence: US)
  Receive Date: 20200727
  Receipt Date: 20200903
  Transmission Date: 20201103
  Serious: No
  Sender: FDA-Public Use
  Company Number: US-BEH-2020120377

PATIENT
  Age: 48 Year
  Sex: Female

DRUGS (3)
  1. PRIVIGEN [Suspect]
     Active Substance: HUMAN IMMUNOGLOBULIN G
     Indication: HYPOGAMMAGLOBULINAEMIA
     Dosage: 35 GRAM, Q3W
     Route: 042
     Dates: start: 20180408
  2. BENLYSTA [Concomitant]
     Active Substance: BELIMUMAB
  3. PRIVIGEN [Suspect]
     Active Substance: HUMAN IMMUNOGLOBULIN G
     Indication: SYSTEMIC LUPUS ERYTHEMATOSUS

REACTIONS (7)
  - Pruritus [Unknown]
  - Product use in unapproved indication [Unknown]
  - Night sweats [Unknown]
  - Dyskinesia [Unknown]
  - No adverse event [Unknown]
  - Headache [Unknown]
  - Weight decreased [Unknown]

NARRATIVE: CASE EVENT DATE: 202005
